FAERS Safety Report 10469775 (Version 5)
Quarter: 2014Q4

REPORT INFORMATION
  Report Type: Spontaneous
  Country: DK (occurrence: DK)
  Receive Date: 20140923
  Receipt Date: 20141117
  Transmission Date: 20150528
  Serious: Yes (Hospitalization, Other)
  Sender: FDA-Public Use
  Company Number: DK-TEVA-510373ISR

PATIENT
  Age: 32 Year
  Sex: Female

DRUGS (10)
  1. AMBISOME [Suspect]
     Active Substance: AMPHOTERICIN B
     Dosage: 6 MG/KG DAILY; 6 MG/KG, QD, CONTINUED FOR 3 MORE MONTHS
     Route: 065
  2. FLUCYTOSINE. [Concomitant]
     Active Substance: FLUCYTOSINE
     Indication: CANDIDA INFECTION
     Dosage: 3500 MG, CORRESPONDING TO APPROX. 50 MG/KG
     Route: 065
  3. FLUCONAZOLE. [Suspect]
     Active Substance: FLUCONAZOLE
     Indication: CANDIDA INFECTION
     Route: 065
  4. FLUCONAZOLE. [Suspect]
     Active Substance: FLUCONAZOLE
     Dosage: 200 MILLIGRAM DAILY;
     Route: 065
  5. FLUCONAZOLE. [Suspect]
     Active Substance: FLUCONAZOLE
     Indication: RENAL IMPAIRMENT
     Dosage: 400 MILLIGRAM DAILY;
     Route: 065
  6. AMBISOME [Suspect]
     Active Substance: AMPHOTERICIN B
     Dosage: 5 MG/KG DAILY; 5 MG/KG, QD
     Route: 065
  7. CASPOFUNGIN ACETATE [Suspect]
     Active Substance: CASPOFUNGIN ACETATE
     Indication: CANDIDA INFECTION
     Dosage: 70 MG AS LOADING DOSE
     Route: 065
  8. CASPOFUNGIN ACETATE [Suspect]
     Active Substance: CASPOFUNGIN ACETATE
     Dosage: 50 MG SUBSEQUENTLY
     Route: 065
  9. AMBISOME [Suspect]
     Active Substance: AMPHOTERICIN B
     Dosage: 4 MG/KG DAILY; 4 MG/KG, QD
     Route: 065
  10. AMBISOME [Suspect]
     Active Substance: AMPHOTERICIN B

REACTIONS (13)
  - Renal impairment [Not Recovered/Not Resolved]
  - Malaise [Unknown]
  - Drug ineffective [Unknown]
  - Condition aggravated [Unknown]
  - Osteomyelitis [Unknown]
  - Maternal exposure during pregnancy [Recovered/Resolved]
  - C-reactive protein abnormal [Unknown]
  - Vomiting [Unknown]
  - Pyrexia [Unknown]
  - Spondylitis [Unknown]
  - Back pain [Unknown]
  - Candida infection [Unknown]
  - Blood creatinine increased [Unknown]
